FAERS Safety Report 8380728-1 (Version None)
Quarter: 2012Q1

REPORT INFORMATION
  Report Type: 
  Country: None (occurrence: None)
  Receive Date: 20120323
  Receipt Date: 20110429
  Transmission Date: 20120608
  Serious: Yes (Disabling, Other)
  Sender: FDA-Public Use
  Company Number: 163-21880-11040588

PATIENT
  Age: 87 Year
  Sex: Female
  Weight: 57.3 kg

DRUGS (11)
  1. LASIX [Concomitant]
  2. METOPROLOL TARTRATE [Concomitant]
  3. AMLODIPINE [Concomitant]
  4. METHOTREXATE [Concomitant]
  5. FUROSEMIDE [Concomitant]
  6. PREDNISONE TAB [Concomitant]
  7. REVLIMID [Suspect]
     Indication: MYELODYSPLASTIC SYNDROME
     Dosage: 10 MG,   DAILY, PO
     Route: 048
     Dates: start: 20110101, end: 20110314
  8. MULTIVITAMINS (MULTIVITAMINS) (TABLETS) [Concomitant]
  9. LEVOTHYROXINE (LEVOTHYROXINE) (TABLETS) [Concomitant]
  10. FERROUS SULFATE  (FERROUS SULFATE) (TABLETS) [Concomitant]
  11. HYDROCODONE (HYDROCODONE) (TABLETS) [Concomitant]

REACTIONS (3)
  - DEEP VEIN THROMBOSIS [None]
  - FATIGUE [None]
  - ANAEMIA [None]
